FAERS Safety Report 17206756 (Version 1)
Quarter: 2019Q4

REPORT INFORMATION
  Report Type: Spontaneous
  Country: DE (occurrence: DE)
  Receive Date: 20191227
  Receipt Date: 20191227
  Transmission Date: 20200122
  Serious: Yes (Hospitalization)
  Sender: FDA-Public Use
  Company Number: DE-TEVA-2019-DE-1157395

PATIENT
  Age: 65 Year
  Sex: Male

DRUGS (5)
  1. BERODUAL [Concomitant]
     Active Substance: FENOTEROL HYDROBROMIDE\IPRATROPIUM BROMIDE
  2. VERAPAMIL [Concomitant]
     Active Substance: VERAPAMIL HYDROCHLORIDE
  3. BRONCHORETARD [Concomitant]
     Active Substance: THEOPHYLLINE ANHYDROUS
  4. TRIMIPRAMIN [Suspect]
     Active Substance: TRIMIPRAMINE
     Dosage: 100 MG, NK
  5. BENAZEPRIL [Concomitant]
     Active Substance: BENAZEPRIL HYDROCHLORIDE

REACTIONS (2)
  - Somnolence [Unknown]
  - Haematoma [Unknown]
